FAERS Safety Report 15283918 (Version 3)
Quarter: 2019Q2

REPORT INFORMATION
  Report Type: Report from Study
  Country: None (occurrence: US)
  Receive Date: 20180816
  Receipt Date: 20190404
  Transmission Date: 20190711
  Serious: Yes (Hospitalization, Other)
  Sender: FDA-Public Use
  Company Number: US-ABBVIE-18K-163-2450303-00

PATIENT
  Age: 60 Year
  Sex: Male
  Weight: 94.89 kg

DRUGS (2)
  1. HUMIRA [Suspect]
     Active Substance: ADALIMUMAB
     Indication: PSORIASIS
     Route: 058
     Dates: start: 2014
  2. HUMIRA [Suspect]
     Active Substance: ADALIMUMAB
     Route: 058
     Dates: start: 2017

REACTIONS (13)
  - Loss of consciousness [Unknown]
  - Joint injury [Unknown]
  - Dialysis [Unknown]
  - Hypertension [Unknown]
  - Discomfort [Not Recovered/Not Resolved]
  - Diabetes mellitus [Unknown]
  - Staphylococcal infection [Unknown]
  - Heart rate increased [Unknown]
  - Head injury [Unknown]
  - Weight decreased [Unknown]
  - Fall [Unknown]
  - Fracture nonunion [Unknown]
  - Ankle fracture [Unknown]

NARRATIVE: CASE EVENT DATE: 2014
